FAERS Safety Report 14582072 (Version 3)
Quarter: 2018Q1

REPORT INFORMATION
  Report Type: Spontaneous
  Country: JP (occurrence: JP)
  Receive Date: 20180228
  Receipt Date: 20180313
  Transmission Date: 20180509
  Serious: Yes (Other)
  Sender: FDA-Public Use
  Company Number: JP-PFIZER INC-2018076327

PATIENT
  Age: 72 Year
  Sex: Female

DRUGS (2)
  1. TS-1 [Suspect]
     Active Substance: GIMERACIL\OTERACIL\TEGAFUR
     Indication: GASTRIC CANCER
     Dosage: 80 MG/M2, CYCLIC WITH 3 WEEKS PER CYCLE
  2. OXALIPLATIN. [Suspect]
     Active Substance: OXALIPLATIN
     Indication: GASTRIC CANCER
     Dosage: 100 MG/M2, CYCLIC WITH 3 WEEKS PER CYCLE

REACTIONS (2)
  - Disturbance in attention [Unknown]
  - Nausea [Unknown]
